FAERS Safety Report 17133858 (Version 1)
Quarter: 2019Q4

REPORT INFORMATION
  Report Type: Spontaneous
  Country: US (occurrence: US)
  Receive Date: 20191209
  Receipt Date: 20191209
  Transmission Date: 20200122
  Serious: Yes (Hospitalization)
  Sender: FDA-Public Use
  Company Number: None

PATIENT
  Age: 62 Year
  Sex: Male
  Weight: 62.1 kg

DRUGS (6)
  1. REXULTI [Suspect]
     Active Substance: BREXPIPRAZOLE
     Indication: DEPRESSION
     Dates: start: 20170501, end: 20170716
  2. LORAZAPAM [Concomitant]
     Active Substance: LORAZEPAM
  3. ZOVIRAX [Concomitant]
     Active Substance: ACYCLOVIR
  4. LAMICTAL [Concomitant]
     Active Substance: LAMOTRIGINE
  5. PROPRANOLOL [Concomitant]
     Active Substance: PROPRANOLOL HYDROCHLORIDE
  6. ASPIRIN. [Concomitant]
     Active Substance: ASPIRIN

REACTIONS (6)
  - Pyrexia [None]
  - White blood cell count decreased [None]
  - Dementia [None]
  - Skin lesion [None]
  - Photophobia [None]
  - Oropharyngeal pain [None]

NARRATIVE: CASE EVENT DATE: 20170719
